FAERS Safety Report 7693505-1 (Version None)
Quarter: 2011Q3

REPORT INFORMATION
  Report Type: 
  Country: None (occurrence: None)
  Receive Date: 20110819
  Receipt Date: 20110819
  Transmission Date: 20111222
  Serious: No
  Sender: FDA-Public Use
  Company Number: None

PATIENT
  Age: 56 Year
  Sex: Female
  Weight: 55.791 kg

DRUGS (1)
  1. LEVOFLOXACIN [Suspect]
     Indication: DIVERTICULITIS
     Dosage: 1 TAB
     Route: 048
     Dates: start: 20110719, end: 20110822

REACTIONS (6)
  - BACK PAIN [None]
  - MUSCULOSKELETAL STIFFNESS [None]
  - NECK PAIN [None]
  - DIZZINESS [None]
  - PAIN IN EXTREMITY [None]
  - ARTHRALGIA [None]
